FAERS Safety Report 18646230 (Version 5)
Quarter: 2021Q2

REPORT INFORMATION
  Report Type: Other
  Country: US (occurrence: US)
  Receive Date: 20201221
  Receipt Date: 20210416
  Transmission Date: 20210717
  Serious: Yes (Death)
  Sender: FDA-Public Use
  Company Number: US-ACORDA-ACO_166325_2020

PATIENT
  Age: 80 Year
  Sex: Female

DRUGS (2)
  1. INBRIJA [Suspect]
     Active Substance: LEVODOPA
     Indication: ON AND OFF PHENOMENON
  2. INBRIJA [Suspect]
     Active Substance: LEVODOPA
     Indication: PARKINSON^S DISEASE
     Dosage: 84 MILLIGRAM, BID, PRN, NOT TO EXCEED 5 DOSES A DAY
     Dates: start: 201902

REACTIONS (2)
  - COVID-19 [Fatal]
  - Malabsorption [Unknown]

NARRATIVE: CASE EVENT DATE: 202101
